FAERS Safety Report 4460541-8 (Version None)
Quarter: 2004Q3

REPORT INFORMATION
  Report Type: 
  Country: None (occurrence: None)
  Receive Date: 20040928
  Receipt Date: 20040816
  Transmission Date: 20050211
  Serious: No
  Sender: FDA-Public Use
  Company Number: US-GLAXOSMITHKLINE-A0522239A

PATIENT
  Sex: Female

DRUGS (6)
  1. ADVAIR DISKUS 100/50 [Suspect]
     Indication: ASTHMA
     Dosage: 1PUFF TWICE PER DAY
     Route: 055
  2. FLOVENT [Suspect]
     Indication: ASTHMA
     Dosage: 44MCG UNKNOWN
     Route: 055
  3. ALLEGRA [Concomitant]
  4. COMBIVENT [Concomitant]
  5. ZANTAC [Concomitant]
  6. NYSTATIN [Concomitant]

REACTIONS (9)
  - ALOPECIA [None]
  - CHEST PAIN [None]
  - CONSTIPATION [None]
  - DYSPNOEA [None]
  - HYPOAESTHESIA [None]
  - OEDEMA [None]
  - ORAL CANDIDIASIS [None]
  - SKIN DESQUAMATION [None]
  - WEIGHT INCREASED [None]
